FAERS Safety Report 5418982-8 (Version None)
Quarter: 2007Q3

REPORT INFORMATION
  Report Type: 
  Country: None (occurrence: None)
  Receive Date: 20070817
  Receipt Date: 20070807
  Transmission Date: 20080115
  Serious: Yes (Other)
  Sender: FDA-Public Use
  Company Number: US-PFIZER INC-2007066445

PATIENT
  Sex: Female
  Weight: 59.09 kg

DRUGS (8)
  1. CHANTIX [Suspect]
     Indication: SMOKING CESSATION THERAPY
     Dosage: TEXT:EVERYDAY
  2. FLEET PHOSPHO-SODA ^DEWITT^ [Suspect]
     Indication: CONSTIPATION
  3. PREMPRO [Concomitant]
  4. NORVASC [Concomitant]
  5. SYNTHROID [Concomitant]
  6. CYMBALTA [Concomitant]
  7. ASPIRIN [Concomitant]
  8. LAMICTAL [Concomitant]

REACTIONS (11)
  - CONSTIPATION [None]
  - CYST [None]
  - DECREASED APPETITE [None]
  - DRUG INEFFECTIVE [None]
  - DYSGEUSIA [None]
  - FREQUENT BOWEL MOVEMENTS [None]
  - INCREASED APPETITE [None]
  - LYMPHOEDEMA [None]
  - PAIN [None]
  - SWELLING [None]
  - WEIGHT INCREASED [None]
